FAERS Safety Report 4369748-1 (Version None)
Quarter: 2004Q2

REPORT INFORMATION
  Report Type: 
  Country: None (occurrence: None)
  Receive Date: 20040525
  Receipt Date: 20040512
  Transmission Date: 20050107
  Serious: Yes (Hospitalization)
  Sender: FDA-Public Use
  Company Number: US-JNJFOC-20040502765

PATIENT
  Age: 61 Year
  Sex: Female
  Weight: 46.7205 kg

DRUGS (2)
  1. ELMIRON [Suspect]
     Indication: BLADDER PAIN
     Dosage: 100 MG, 3 IN 1 DAY, ORAL
     Route: 048
     Dates: start: 20040115, end: 20040215
  2. ROCEPHIN [Suspect]
     Indication: VIRAL INFECTION

REACTIONS (6)
  - ARTHRALGIA [None]
  - BURNING SENSATION [None]
  - DEPRESSION [None]
  - MUSCULOSKELETAL STIFFNESS [None]
  - RASH ERYTHEMATOUS [None]
  - VIRAL INFECTION [None]
